FAERS Safety Report 6326253-0 (Version None)
Quarter: 2009Q3

REPORT INFORMATION
  Report Type: 
  Country: None (occurrence: None)
  Receive Date: 20090824
  Receipt Date: 20090817
  Transmission Date: 20100115
  Serious: Yes (Other)
  Sender: FDA-Public Use
  Company Number: US-JNJCH-2009022377

PATIENT
  Age: 44 Year
  Sex: Female
  Weight: 57.6 kg

DRUGS (1)
  1. BENADRYL ALLERGY DYE-FREE [Suspect]
     Indication: HYPERSENSITIVITY
     Dosage: TEXT:1 TABLET TWICE DAILY
     Route: 048
     Dates: start: 20090816, end: 20090817

REACTIONS (5)
  - CHEST PAIN [None]
  - DYSPNOEA [None]
  - MALAISE [None]
  - PHARYNGEAL OEDEMA [None]
  - POOR QUALITY DRUG ADMINISTERED [None]
